FAERS Safety Report 5046398-5 (Version None)
Quarter: 2006Q3

REPORT INFORMATION
  Report Type: 
  Country: None (occurrence: None)
  Receive Date: 20060710
  Receipt Date: 20060622
  Transmission Date: 20061208
  Serious: Yes (Hospitalization, Disabling)
  Sender: FDA-Public Use
  Company Number: US-ROCHE-453039

PATIENT
  Age: 80 Year
  Sex: Female
  Weight: 51.7 kg

DRUGS (9)
  1. BONIVA [Suspect]
     Indication: OSTEOPOROSIS
     Route: 048
     Dates: start: 20060617, end: 20060617
  2. BUSPAR [Concomitant]
  3. LOPRESSOR [Concomitant]
     Dosage: REPORTED AS: 12.5 Q 12H
  4. ACTOS [Concomitant]
  5. LISINOPRIL [Concomitant]
  6. MIACALCIN [Concomitant]
  7. VITAMIN B-12 [Concomitant]
  8. PHENERGAN [Concomitant]
     Dosage: FREQUENTIE: REPORTED: Q6H PRN (EVERY 6 HOURS WHEN REQUIRED)
  9. METOPROLOL TARTRATE [Concomitant]

REACTIONS (11)
  - ASTHENIA [None]
  - DEHYDRATION [None]
  - DIABETES MELLITUS INADEQUATE CONTROL [None]
  - DYSPHAGIA [None]
  - ELECTROLYTE IMBALANCE [None]
  - FOREIGN BODY TRAUMA [None]
  - HEADACHE [None]
  - ODYNOPHAGIA [None]
  - OESOPHAGEAL STENOSIS [None]
  - OESOPHAGITIS CHEMICAL [None]
  - RENAL FAILURE ACUTE [None]
